FAERS Safety Report 20627445 (Version 1)
Quarter: 2022Q1

REPORT INFORMATION
  Report Type: Spontaneous
  Country: US (occurrence: US)
  Receive Date: 20220323
  Receipt Date: 20220323
  Transmission Date: 20220423
  Serious: No
  Sender: FDA-Public Use
  Company Number: US-GW PHARMA-202203USGW01390

PATIENT
  Age: 2 Year
  Sex: Male

DRUGS (4)
  1. EPIDIOLEX [Suspect]
     Active Substance: CANNABIDIOL
     Indication: Epilepsy
     Dosage: 30 MILLIGRAM, BID
     Route: 048
     Dates: start: 20220308, end: 20220314
  2. EPIDIOLEX [Suspect]
     Active Substance: CANNABIDIOL
     Dosage: 70 MILLIGRAM, BID
     Route: 048
     Dates: start: 20220315
  3. CLOBAZAM [Concomitant]
     Active Substance: CLOBAZAM
     Indication: Product used for unknown indication
     Dosage: UNK
     Route: 065
  4. VALPROIC ACID [Concomitant]
     Active Substance: VALPROIC ACID
     Indication: Product used for unknown indication
     Dosage: UNK
     Route: 065

REACTIONS (2)
  - Skin irritation [Unknown]
  - Rash papular [Unknown]

NARRATIVE: CASE EVENT DATE: 20220316
